FAERS Safety Report 5470565-X (Version None)
Quarter: 2007Q3

REPORT INFORMATION
  Report Type: 
  Country: None (occurrence: None)
  Receive Date: 20070928
  Receipt Date: 20070919
  Transmission Date: 20080115
  Serious: Yes (Other)
  Sender: FDA-Public Use
  Company Number: PHBS2007JP12450

PATIENT
  Age: 6 Year
  Sex: Female

DRUGS (2)
  1. FAMOTIDINE [Concomitant]
     Dosage: 10 MG/D
     Route: 048
     Dates: start: 20030101
  2. GLEEVEC [Suspect]
     Indication: CHRONIC MYELOID LEUKAEMIA
     Dosage: 300 MG/D
     Route: 048
     Dates: start: 20030707

REACTIONS (4)
  - FAILURE TO THRIVE [None]
  - HYPOGAMMAGLOBULINAEMIA [None]
  - RASH [None]
  - VOMITING [None]
